FAERS Safety Report 8181836-0 (Version None)
Quarter: 2012Q1

REPORT INFORMATION
  Report Type: 
  Country: None (occurrence: None)
  Receive Date: 20120302
  Receipt Date: 20120220
  Transmission Date: 20120608
  Serious: Yes (Hospitalization)
  Sender: FDA-Public Use
  Company Number: IN-WATSON-2012-03310

PATIENT
  Sex: Female
  Weight: 2.35 kg

DRUGS (2)
  1. DICLOFENAC SODIUM [Suspect]
     Indication: DEBRIDEMENT
  2. DICLOFENAC SODIUM [Suspect]
     Indication: TIBIA FRACTURE
     Dosage: 50 MG, BID
     Route: 064

REACTIONS (1)
  - RENAL FAILURE NEONATAL [None]
